FAERS Safety Report 20631132 (Version 1)
Quarter: 2022Q1

REPORT INFORMATION
  Report Type: Spontaneous
  Country: US (occurrence: US)
  Receive Date: 20220324
  Receipt Date: 20220324
  Transmission Date: 20220423
  Serious: Yes (Other)
  Sender: FDA-Public Use
  Company Number: US-TEVA-2022-US-2018320

PATIENT
  Sex: Female

DRUGS (13)
  1. MORPHINE [Suspect]
     Active Substance: MORPHINE
     Route: 065
  2. PROPAFENONE [Suspect]
     Active Substance: PROPAFENONE
     Route: 065
  3. AUSTEDO [Concomitant]
     Active Substance: DEUTETRABENAZINE
     Dosage: 12 MILLIGRAM DAILY; TWICE DAILY
     Route: 065
  4. ACETAMINOPHEN [Concomitant]
     Active Substance: ACETAMINOPHEN
     Route: 065
  5. ASCORBIC ACID [Concomitant]
     Active Substance: ASCORBIC ACID
     Dosage: TAKE 1 TABLET AS NEEDED OCCASIONALLY IN THE WINTER PER PATIENT
     Route: 065
  6. ASPIRIN [Concomitant]
     Active Substance: ASPIRIN
     Route: 065
  7. ATENOLOL [Concomitant]
     Active Substance: ATENOLOL
     Route: 065
  8. CHOLECALCIFEROL [Concomitant]
     Active Substance: CHOLECALCIFEROL
     Route: 065
  9. FERROUS SULFATE [Concomitant]
     Active Substance: FERROUS SULFATE
     Dosage: TAKE 1 TABLET DAILY AS NEEDED ONLY IN THE WINTER
     Route: 065
  10. Levothryoxine Sodium [Concomitant]
     Route: 065
  11. ZINC [Concomitant]
     Active Substance: ZINC
     Route: 065
  12. ZOLEDRONIC ACID [Concomitant]
     Active Substance: ZOLEDRONIC ACID
     Dosage: PIGGYBACK
     Route: 065
  13. mannitol-water [Concomitant]
     Dosage: PIGGYBACK
     Route: 065

REACTIONS (2)
  - Bradycardia [Unknown]
  - Hallucination [Unknown]
